FAERS Safety Report 7344573-8 (Version None)
Quarter: 2011Q1

REPORT INFORMATION
  Report Type: 
  Country: None (occurrence: None)
  Receive Date: 20110310
  Receipt Date: 20110309
  Transmission Date: 20110831
  Serious: Yes (Death)
  Sender: FDA-Public Use
  Company Number: GB-ABBOTT-11P-167-0710432-00

PATIENT
  Sex: Female
  Weight: 46 kg

DRUGS (2)
  1. GOLD [Concomitant]
     Indication: PRODUCT USED FOR UNKNOWN INDICATION
     Dates: start: 20031007
  2. HUMIRA [Suspect]
     Indication: RHEUMATOID ARTHRITIS
     Route: 058
     Dates: start: 20040601, end: 20061119

REACTIONS (2)
  - PNEUMONIA [None]
  - RHEUMATOID ARTHRITIS [None]
